FAERS Safety Report 18985447 (Version 4)
Quarter: 2025Q1

REPORT INFORMATION
  Report Type: Spontaneous
  Country: US (occurrence: US)
  Receive Date: 20210309
  Receipt Date: 20250324
  Transmission Date: 20250409
  Serious: Yes (Other)
  Sender: BIOGEN
  Company Number: US-BIOGEN-2021BI00987702

PATIENT
  Sex: Female

DRUGS (1)
  1. TECFIDERA [Suspect]
     Active Substance: DIMETHYL FUMARATE
     Indication: Multiple sclerosis
     Route: 050
     Dates: start: 20131104, end: 20210226

REACTIONS (4)
  - Epilepsy [Not Recovered/Not Resolved]
  - Fatigue [Unknown]
  - Chromaturia [Not Recovered/Not Resolved]
  - Flushing [Unknown]
